FAERS Safety Report 9742012 (Version 1)
Quarter: 2013Q4

REPORT INFORMATION
  Report Type: Spontaneous
  Country: US (occurrence: US)
  Receive Date: 20131210
  Receipt Date: 20131210
  Transmission Date: 20140711
  Serious: No
  Sender: FDA-Public Use
  Company Number: US-PFIZER INC-2013351295

PATIENT
  Age: 43 Year
  Sex: Male
  Weight: 90.7 kg

DRUGS (1)
  1. NEURONTIN [Suspect]
     Dosage: 600 MG, 3X/DAY
     Dates: start: 2008

REACTIONS (6)
  - Somnolence [Not Recovered/Not Resolved]
  - Fatigue [Not Recovered/Not Resolved]
  - Amnesia [Not Recovered/Not Resolved]
  - Diplopia [Not Recovered/Not Resolved]
  - Eye movement disorder [Not Recovered/Not Resolved]
  - Logorrhoea [Not Recovered/Not Resolved]
